FAERS Safety Report 8378682-1 (Version None)
Quarter: 2012Q2

REPORT INFORMATION
  Report Type: 
  Country: None (occurrence: None)
  Receive Date: 20120522
  Receipt Date: 20120517
  Transmission Date: 20120825
  Serious: Yes (Other)
  Sender: FDA-Public Use
  Company Number: GB-TEVA-318761ISR

PATIENT
  Sex: Female

DRUGS (4)
  1. CYTARABINE [Suspect]
  2. ETOPOSIDE [Suspect]
  3. DAUNORUBICIN HYDROCHLORIDE [Suspect]
  4. LESTAURTINIB [Suspect]
     Dosage: LESTAURTINIB (CEP-701) OR PLACEBO
     Dates: start: 20111109, end: 20111116

REACTIONS (1)
  - THROMBOCYTOPENIA [None]
